FAERS Safety Report 16343158 (Version 1)
Quarter: 2019Q3

REPORT INFORMATION
  Report Type: Spontaneous
  Country: US (occurrence: US)
  Receive Date: 20190521
  Receipt Date: 20190521
  Transmission Date: 20191004
  Serious: No
  Sender: FDA-Public Use
  Company Number: None

PATIENT
  Age: 9 Year
  Sex: Female
  Weight: 36 kg

DRUGS (2)
  1. SINGULAIR [Suspect]
     Active Substance: MONTELUKAST SODIUM
     Indication: ASTHMA
     Dosage: ?          QUANTITY:1 TABLET(S);?
     Dates: start: 20150601, end: 20180901
  2. SINGULAIR [Suspect]
     Active Substance: MONTELUKAST SODIUM
     Indication: MULTIPLE ALLERGIES
     Dosage: ?          QUANTITY:1 TABLET(S);?
     Dates: start: 20150601, end: 20180901

REACTIONS (7)
  - Depressed mood [None]
  - Anxiety [None]
  - Anger [None]
  - Weight increased [None]
  - Panic attack [None]
  - Depression [None]
  - Social avoidant behaviour [None]

NARRATIVE: CASE EVENT DATE: 20180901
